FAERS Safety Report 20578484 (Version 1)
Quarter: 2022Q1

REPORT INFORMATION
  Report Type: Spontaneous
  Country: GB (occurrence: GB)
  Receive Date: 20220310
  Receipt Date: 20220310
  Transmission Date: 20220423
  Serious: Yes (Other)
  Sender: FDA-Public Use
  Company Number: None

PATIENT
  Age: 16 Year

DRUGS (1)
  1. TACROLIMUS [Suspect]
     Active Substance: TACROLIMUS
     Indication: Alopecia areata
     Dosage: ON AND OFF SINCE 2018
     Dates: start: 20180303

REACTIONS (2)
  - Chronic kidney disease [Unknown]
  - Product use in unapproved indication [Unknown]
